FAERS Safety Report 4627915-3 (Version None)
Quarter: 2005Q2

REPORT INFORMATION
  Report Type: 
  Country: None (occurrence: None)
  Receive Date: 20050401
  Receipt Date: 20050316
  Transmission Date: 20051028
  Serious: Yes (Hospitalization)
  Sender: FDA-Public Use
  Company Number: 2005UW04330

PATIENT
  Age: 47 Year
  Sex: Female

DRUGS (3)
  1. SEROQUEL [Suspect]
     Indication: SCHIZOPHRENIA
     Dosage: 850 MG DAILY PO
     Route: 048
     Dates: start: 20040601, end: 20050101
  2. SEROQUEL [Suspect]
     Indication: SCHIZOPHRENIA
     Dosage: 750 MG DAILY PO
     Route: 048
     Dates: start: 20050101
  3. TRAZODONE HCL [Concomitant]

REACTIONS (6)
  - CONSTIPATION [None]
  - HYPERHIDROSIS [None]
  - NAUSEA [None]
  - PAIN IN EXTREMITY [None]
  - SCHIZOPHRENIA [None]
  - VOMITING [None]
